FAERS Safety Report 4819068-3 (Version None)
Quarter: 2005Q4

REPORT INFORMATION
  Report Type: 
  Country: None (occurrence: None)
  Receive Date: 20051103
  Receipt Date: 20050913
  Transmission Date: 20060501
  Serious: Yes (Hospitalization)
  Sender: FDA-Public Use
  Company Number: 200512082DE

PATIENT
  Age: 57 Year
  Sex: Male
  Weight: 85 kg

DRUGS (5)
  1. ARAVA [Suspect]
     Indication: RHEUMATOID ARTHRITIS
     Route: 048
     Dates: start: 20020101, end: 20050728
  2. DECORTIN-H [Concomitant]
     Indication: RHEUMATOID ARTHRITIS
     Route: 048
     Dates: start: 20020101
  3. BENZODIAZEPINE DERIVATIVES [Concomitant]
     Indication: PAIN
  4. ATOSIL [Concomitant]
  5. CHLORALHYDRAT [Concomitant]

REACTIONS (6)
  - ABSCESS ORAL [None]
  - GASTROINTESTINAL DISORDER [None]
  - GENERAL PHYSICAL HEALTH DETERIORATION [None]
  - INFLAMMATION [None]
  - OESOPHAGEAL CANDIDIASIS [None]
  - PNEUMATOSIS INTESTINALIS [None]
